FAERS Safety Report 4400884-7 (Version None)
Quarter: 2004Q3

REPORT INFORMATION
  Report Type: 
  Country: None (occurrence: None)
  Receive Date: 20040907
  Receipt Date: 20030721
  Transmission Date: 20050211
  Serious: No
  Sender: FDA-Public Use
  Company Number: US-BRISTOL-MYERS SQUIBB COMPANY-12331245

PATIENT
  Age: 82 Year
  Sex: Female
  Weight: 75 kg

DRUGS (9)
  1. COUMADIN [Suspect]
     Indication: ATRIAL FIBRILLATION
     Dosage: DOSAGE: 7.5MG X 2 DAYS/WEEK AND 5MG/DAY FOR 5 DAYS WEEKLY UNTIL 1-MAY-03: DECREASED TO 5MG/DAY
     Route: 048
  2. OMEGA 3 FISH OIL [Suspect]
     Dosage: THERAPY FROM: ^A FEW WEEKS AGO^
     Route: 048
  3. SERZONE [Concomitant]
     Route: 048
  4. DYAZIDE [Concomitant]
  5. LANOXIN [Concomitant]
  6. CENTRUM [Concomitant]
  7. CORAL CALCIUM [Concomitant]
  8. VALIUM [Concomitant]
     Indication: ARRHYTHMIA
  9. VITAMIN B COMPLEX CAP [Concomitant]

REACTIONS (2)
  - CONTUSION [None]
  - EPISTAXIS [None]
